FAERS Safety Report 9556763 (Version 1)
Quarter: 2013Q3

REPORT INFORMATION
  Report Type: Spontaneous
  Country: US (occurrence: None)
  Receive Date: 20130724
  Receipt Date: 20130724
  Transmission Date: 20140515
  Serious: Yes (Other)
  Sender: FDA-Public Use
  Company Number: PHEH2013US010994

PATIENT
  Sex: 0

DRUGS (2)
  1. GILENYA [Suspect]
     Route: 048
  2. NUVIGIL (ARMODAFINIL) [Concomitant]

REACTIONS (1)
  - Cardiac flutter [None]
